FAERS Safety Report 9166952 (Version 1)
Quarter: 2013Q1

REPORT INFORMATION
  Report Type: Report from Study
  Country: GR (occurrence: GR)
  Receive Date: 20130317
  Receipt Date: 20130317
  Transmission Date: 20140127
  Serious: Yes (Other)
  Sender: FDA-Public Use
  Company Number: PHHY2013GR024345

PATIENT
  Sex: 0

DRUGS (1)
  1. ACZ885 [Suspect]

REACTIONS (1)
  - Uveitis [Unknown]
